FAERS Safety Report 24140614 (Version 1)
Quarter: 2024Q3

REPORT INFORMATION
  Report Type: Spontaneous
  Country: DE (occurrence: DE)
  Receive Date: 20240726
  Receipt Date: 20240726
  Transmission Date: 20241016
  Serious: Yes (Death, Other)
  Sender: LABORATOIRES SERB
  Company Number: DE-SERB S.A.S.-2159631

PATIENT
  Age: 59 Year
  Sex: Male

DRUGS (3)
  1. CYANOKIT [Suspect]
     Active Substance: HYDROXOCOBALAMIN
     Indication: Respiratory fume inhalation disorder
     Route: 042
     Dates: start: 20240616, end: 20240616
  2. CYANOKIT [Suspect]
     Active Substance: HYDROXOCOBALAMIN
     Indication: Chemical poisoning
  3. CYANOKIT [Suspect]
     Active Substance: HYDROXOCOBALAMIN
     Indication: Injury

REACTIONS (3)
  - Electrocardiogram ST segment elevation [Fatal]
  - Cardiogenic shock [Fatal]
  - Arrhythmia [Fatal]

NARRATIVE: CASE EVENT DATE: 20240617
